FAERS Safety Report 8541700-1 (Version None)
Quarter: 2012Q3

REPORT INFORMATION
  Report Type: 
  Country: None (occurrence: None)
  Receive Date: 20120726
  Receipt Date: 20120710
  Transmission Date: 20120928
  Serious: Yes (Other)
  Sender: FDA-Public Use
  Company Number: AT-ROCHE-1086366

PATIENT

DRUGS (3)
  1. OXALIPLATIN [Suspect]
     Indication: COLORECTAL CANCER METASTATIC
     Dosage: DAY 1 OF A 2 WEEK CYCLE FOR 6 CYCLES
  2. AVASTIN [Suspect]
     Indication: COLORECTAL CANCER METASTATIC
     Dosage: DAY 1 OF A 2 WEEK CYCLE FOR 6 CYCLES
  3. XELODA [Suspect]
     Indication: COLORECTAL CANCER METASTATIC
     Dosage: DAY 1-7 OF A 2 WEEK CYCLE FOR 6 CYCLES

REACTIONS (4)
  - PALMAR-PLANTAR ERYTHRODYSAESTHESIA SYNDROME [None]
  - EMBOLISM [None]
  - DIARRHOEA [None]
  - NEUROPATHY PERIPHERAL [None]
